FAERS Safety Report 10527730 (Version 1)
Quarter: 2014Q4

REPORT INFORMATION
  Report Type: Spontaneous
  Country: US (occurrence: None)
  Receive Date: 20141016
  Receipt Date: 20141016
  Transmission Date: 20150528
  Serious: No
  Sender: FDA-Public Use
  Company Number: None

PATIENT
  Age: 22 Year
  Sex: Female

DRUGS (1)
  1. MIRVASO [Suspect]
     Active Substance: BRIMONIDINE TARTRATE

REACTIONS (5)
  - Skin burning sensation [None]
  - Rebound effect [None]
  - Skin irritation [None]
  - Erythema [None]
  - Rash [None]

NARRATIVE: CASE EVENT DATE: 20141012
